FAERS Safety Report 4568588-8 (Version None)
Quarter: 2005Q1

REPORT INFORMATION
  Report Type: 
  Country: None (occurrence: None)
  Receive Date: 20050202
  Receipt Date: 20050125
  Transmission Date: 20050727
  Serious: Yes (Hospitalization)
  Sender: FDA-Public Use
  Company Number: JP-ABBOTT-05P-087-0288042-00

PATIENT
  Age: 47 Year
  Sex: Male

DRUGS (3)
  1. SEVORANE LIQUID FOR INHALATION [Suspect]
     Indication: ANAESTHESIA
     Route: 055
  2. PROPOFOL [Concomitant]
     Indication: ANAESTHESIA
     Route: 042
  3. SUXAMETHONIUM CHLORIDE [Concomitant]
     Indication: MUSCLE RELAXANT THERAPY
     Route: 042

REACTIONS (1)
  - RHABDOMYOLYSIS [None]
